FAERS Safety Report 11457322 (Version 3)
Quarter: 2017Q2

REPORT INFORMATION
  Report Type: Spontaneous
  Country: US (occurrence: US)
  Receive Date: 20150904
  Receipt Date: 20170608
  Transmission Date: 20170829
  Serious: No
  Sender: FDA-Public Use
  Company Number: US-ASTRAZENECA-2015SE82075

PATIENT
  Age: 668 Month
  Sex: Male

DRUGS (5)
  1. SPIRIVA [Concomitant]
     Active Substance: TIOTROPIUM BROMIDE MONOHYDRATE
  2. OXYGEN. [Concomitant]
     Active Substance: OXYGEN
  3. SYMBICORT [Suspect]
     Active Substance: BUDESONIDE\FORMOTEROL FUMARATE DIHYDRATE
     Indication: CHRONIC OBSTRUCTIVE PULMONARY DISEASE
     Dosage: 160/4.5, TWO PUFFS, TWO TIMES A DAY
     Route: 055
  4. LISINOPRIL. [Suspect]
     Active Substance: LISINOPRIL
     Indication: HYPERTENSION
     Dosage: 20 TO 25MG, DAILY
     Route: 048
  5. TUDORZA PRESSAIR [Suspect]
     Active Substance: ACLIDINIUM BROMIDE
     Indication: CHRONIC OBSTRUCTIVE PULMONARY DISEASE
     Dosage: 400 UG, 1 PUFF, TWO TIMES A DAY
     Route: 055
     Dates: start: 2015

REACTIONS (6)
  - Memory impairment [Unknown]
  - Dyspnoea [Unknown]
  - Throat irritation [Unknown]
  - Device failure [Unknown]
  - Dysphonia [Unknown]
  - Drug dose omission [Unknown]

NARRATIVE: CASE EVENT DATE: 201508
